FAERS Safety Report 9729085 (Version 1)
Quarter: 2013Q4

REPORT INFORMATION
  Report Type: Spontaneous
  Country: IN (occurrence: IN)
  Receive Date: 20131204
  Receipt Date: 20131204
  Transmission Date: 20140711
  Serious: Yes (Hospitalization)
  Sender: FDA-Public Use
  Company Number: PHHY2013IN137213

PATIENT
  Age: 7 Year
  Sex: Female

DRUGS (4)
  1. DOXORUBICIN [Suspect]
     Indication: HODGKIN^S DISEASE
  2. BLEOMYCIN [Concomitant]
     Indication: HODGKIN^S DISEASE
  3. VINBLASTINE [Concomitant]
     Indication: HODGKIN^S DISEASE
  4. DACARBAZINE [Concomitant]
     Indication: HODGKIN^S DISEASE

REACTIONS (7)
  - Multi-organ disorder [Recovered/Resolved]
  - Lactic acidosis [Recovered/Resolved]
  - Cardiac failure congestive [Recovered/Resolved]
  - Cardiogenic shock [Recovered/Resolved]
  - Cardiac arrest [Recovered/Resolved]
  - Ischaemia [Recovered/Resolved]
  - Hypoxia [Recovered/Resolved]
